FAERS Safety Report 8266936-9 (Version None)
Quarter: 2012Q2

REPORT INFORMATION
  Report Type: 
  Country: None (occurrence: None)
  Receive Date: 20120404
  Receipt Date: 20120404
  Transmission Date: 20120825
  Serious: Yes (Hospitalization)
  Sender: FDA-Public Use
  Company Number: None

PATIENT
  Age: 74 Year
  Sex: Female
  Weight: 90.9 kg

DRUGS (17)
  1. METOPROLOL TARTRATE [Suspect]
  2. CALCIUM + MAG [Concomitant]
  3. VOLTAREN [Concomitant]
  4. DIOVAN HCT [Suspect]
  5. HYDROXYZINE [Suspect]
     Indication: PRURITUS
     Dosage: 25MG Q4H PRN PO RECENT
     Route: 048
  6. HYDROCODONE BITARTRATE AND ACETAMINOPHEN [Suspect]
     Indication: PAIN
     Dosage: 5MG/500MG QID PRN PO CHRONIC
     Route: 048
  7. LIMBREL [Concomitant]
  8. VERAMYST [Concomitant]
  9. OMEPRAZOLE [Concomitant]
  10. OPANA [Suspect]
     Indication: PAIN
     Dosage: 30 MG BID PO CHRONIC
     Route: 048
  11. CELEBREX [Concomitant]
  12. DIOVAN HCT [Concomitant]
  13. SINGULAIR [Concomitant]
  14. ESTRACE VAG CREAM [Concomitant]
  15. AMITRIPTYLINE HYDROCHLORIDE [Suspect]
  16. MULTI-VITAMINS [Concomitant]
  17. PRAMOSONE [Concomitant]

REACTIONS (2)
  - ORTHOSTATIC HYPOTENSION [None]
  - MENTAL STATUS CHANGES [None]
